FAERS Safety Report 15176415 (Version 1)
Quarter: 2018Q3

REPORT INFORMATION
  Report Type: Report from Study
  Country: US (occurrence: US)
  Receive Date: 20180720
  Receipt Date: 20180720
  Transmission Date: 20181010
  Serious: No
  Sender: FDA-Public Use
  Company Number: US-AMGEN-USASL2018091107

PATIENT
  Age: 65 Year
  Sex: Male
  Weight: 95.69 kg

DRUGS (1)
  1. REPATHA [Suspect]
     Active Substance: EVOLOCUMAB
     Indication: LIPIDS ABNORMAL
     Dosage: 140 MG, Q2WK
     Route: 058
     Dates: start: 20180302

REACTIONS (2)
  - Injection site swelling [Recovered/Resolved]
  - Low density lipoprotein decreased [Recovered/Resolved]

NARRATIVE: CASE EVENT DATE: 20180702
